FAERS Safety Report 9353880 (Version 2)
Quarter: 2013Q3

REPORT INFORMATION
  Report Type: Spontaneous
  Country: US (occurrence: US)
  Receive Date: 20130618
  Receipt Date: 20130715
  Transmission Date: 20140515
  Serious: Yes (Other)
  Sender: FDA-Public Use
  Company Number: US-PFIZER INC-2013178189

PATIENT
  Age: 57 Year
  Sex: Female

DRUGS (2)
  1. EPIPEN [Suspect]
     Indication: ARTHROPOD STING
     Dosage: 0.3 MG, AS NEEDED
     Route: 058
     Dates: start: 20130605
  2. BENADRYL [Suspect]
     Indication: ARTHROPOD STING
     Dosage: UNK
     Dates: start: 20130605

REACTIONS (3)
  - Convulsion [Not Recovered/Not Resolved]
  - Arthralgia [Not Recovered/Not Resolved]
  - Musculoskeletal discomfort [Recovered/Resolved]
